FAERS Safety Report 24760181 (Version 1)
Quarter: 2024Q4

REPORT INFORMATION
  Report Type: Spontaneous
  Country: FR (occurrence: FR)
  Receive Date: 20241220
  Receipt Date: 20241220
  Transmission Date: 20250115
  Serious: Yes (Life-Threatening)
  Sender: PFIZER
  Company Number: FR-PFIZER INC-2012195239

PATIENT
  Age: 34 Year
  Sex: Male

DRUGS (16)
  1. LEUCOVORIN CALCIUM [Suspect]
     Active Substance: LEUCOVORIN CALCIUM
     Dosage: UNK
     Route: 048
     Dates: start: 20120710
  2. RIFABUTIN [Suspect]
     Active Substance: RIFABUTIN
     Indication: Atypical mycobacterium test positive
     Dosage: 150 MG, UNK
     Route: 048
     Dates: start: 20120711
  3. ACUPAN [Suspect]
     Active Substance: NEFOPAM HYDROCHLORIDE
     Indication: Pain
     Dosage: 120 MG, 1X/DAY
     Route: 042
     Dates: start: 20120716, end: 20120727
  4. AMIKACIN [Suspect]
     Active Substance: AMIKACIN
     Indication: Bacterial test positive
     Dosage: 900 MG, 1X/DAY
     Route: 042
     Dates: start: 20120711
  5. BACTRIM [Suspect]
     Active Substance: SULFAMETHOXAZOLE\TRIMETHOPRIM
     Indication: Bacterial test positive
     Dosage: 800 MG, 1X/DAY
     Route: 048
     Dates: start: 20120713
  6. CERNEVIT [Suspect]
     Active Substance: VITAMINS
     Dosage: UNK
     Route: 042
     Dates: start: 20120710, end: 20120802
  7. POTASSIUM CHLORIDE [Suspect]
     Active Substance: POTASSIUM CHLORIDE
     Dosage: UNK
     Route: 048
     Dates: start: 20120710
  8. ISENTRESS [Suspect]
     Active Substance: RALTEGRAVIR POTASSIUM
     Indication: HIV infection
     Dosage: UNK
     Route: 048
     Dates: start: 201205
  9. KALETRA [Suspect]
     Active Substance: LOPINAVIR\RITONAVIR
     Indication: HIV infection
     Dosage: UNK
     Route: 048
     Dates: start: 201203
  10. PRAZEPAM [Suspect]
     Active Substance: PRAZEPAM
     Indication: Mental disorder
     Dosage: 1 DF, 1X/DAY
     Dates: start: 20120710
  11. MYAMBUTOL [Suspect]
     Active Substance: ETHAMBUTOL HYDROCHLORIDE
     Dosage: 2 DF, 1X/DAY
     Route: 048
     Dates: start: 20120711
  12. OLANZAPINE [Suspect]
     Active Substance: OLANZAPINE
     Indication: Mental disorder
     Dosage: 5 MG, (1 DF) 1X/DAY
     Route: 048
     Dates: start: 2012
  13. PERFALGAN [Suspect]
     Active Substance: ACETAMINOPHEN
     Indication: Pain
     Dosage: UNK MG/ML, UNK
     Route: 042
     Dates: start: 20120711
  14. CLARITHROMYCIN [Suspect]
     Active Substance: CLARITHROMYCIN
     Indication: Bacterial test positive
     Dosage: 500 MG, 1X/DAY
     Route: 048
     Dates: start: 20120711
  15. TRUVADA [Suspect]
     Active Substance: EMTRICITABINE\TENOFOVIR DISOPROXIL FUMARATE
     Indication: HIV infection
     Dosage: UNK
     Route: 048
     Dates: start: 201203
  16. PERIKABIVEN [Suspect]
     Active Substance: ALANINE\ARGININE\ASPARTIC ACID\CALCIUM CHLORIDE\DEXTROSE MONOHYDRATE\GLUTAMIC ACID\GLYCINE\HISTIDINE
     Indication: Parenteral nutrition
     Dosage: UNK
     Route: 051
     Dates: start: 20120710

REACTIONS (2)
  - Seizure [Recovered/Resolved]
  - Coma [Recovered/Resolved]

NARRATIVE: CASE EVENT DATE: 20120725
